FAERS Safety Report 5167322-0 (Version None)
Quarter: 2006Q4

REPORT INFORMATION
  Report Type: 
  Country: None (occurrence: None)
  Receive Date: 20061129
  Receipt Date: 20061115
  Transmission Date: 20070319
  Serious: Yes (Other)
  Sender: FDA-Public Use
  Company Number: 2006JP004781

PATIENT
  Age: 10 Year
  Sex: Female

DRUGS (1)
  1. PROTOPIC [Suspect]
     Indication: ALOPECIA
     Dosage: 0.1%, TOPICAL
     Route: 061

REACTIONS (1)
  - SKIN PAPILLOMA [None]
